FAERS Safety Report 24673409 (Version 1)
Quarter: 2024Q4

REPORT INFORMATION
  Report Type: Spontaneous
  Country: FR (occurrence: FR)
  Receive Date: 20241128
  Receipt Date: 20241128
  Transmission Date: 20250115
  Serious: Yes (Other)
  Sender: AMGEN
  Company Number: FR-AMGEN-FRASP2024229231

PATIENT
  Sex: Female
  Weight: 68 kg

DRUGS (13)
  1. TEPEZZA [Suspect]
     Active Substance: TEPROTUMUMAB-TRBW
     Indication: Endocrine ophthalmopathy
     Dosage: 10 MILLIGRAM/KILOGRAM 500 MG 1 CYCLE
     Route: 040
     Dates: start: 20220207, end: 20220207
  2. TEPEZZA [Suspect]
     Active Substance: TEPROTUMUMAB-TRBW
     Dosage: 20 MILLIGRAM/KILOGRAM, 500 MG 1 CYCLE C2
     Route: 040
     Dates: start: 20220228, end: 20220228
  3. TEPEZZA [Suspect]
     Active Substance: TEPROTUMUMAB-TRBW
     Dosage: 20 MILLIGRAM/KILOGRAM 500 MG 1 CYCLE C3
     Route: 040
     Dates: start: 20220321, end: 20220321
  4. TEPEZZA [Suspect]
     Active Substance: TEPROTUMUMAB-TRBW
     Dosage: 20 MILLIGRAM/KILOGRAM, 500 MG 1 CYCLE C4
     Route: 040
     Dates: start: 20220412, end: 20220412
  5. TEPEZZA [Suspect]
     Active Substance: TEPROTUMUMAB-TRBW
     Dosage: 20 MILLIGRAM/KILOGRAM, 500 MG  1 CYCLE C5
     Route: 040
     Dates: start: 20220502, end: 20220502
  6. TEPEZZA [Suspect]
     Active Substance: TEPROTUMUMAB-TRBW
     Dosage: 20 MILLIGRAM/KILOGRAM, 500 MG 1 CYCLE  C6
     Route: 040
     Dates: start: 20220524, end: 20220524
  7. TEPEZZA [Suspect]
     Active Substance: TEPROTUMUMAB-TRBW
     Dosage: 20 MILLIGRAM/KILOGRAM, 500 MG 1 CYCLE C7
     Route: 040
     Dates: start: 20220613, end: 20220613
  8. TEPEZZA [Suspect]
     Active Substance: TEPROTUMUMAB-TRBW
     Dosage: 20 MILLIGRAM/KILOGRAM, 500 MG 1 CYCLE C8 LAST CYCLE
     Route: 040
     Dates: start: 20220704, end: 20220704
  9. Solupred [Concomitant]
     Indication: Endocrine ophthalmopathy
     Dosage: 30 MILLIGRAM, QD
     Route: 048
     Dates: start: 202112, end: 2022
  10. SOLU-MEDROL [Concomitant]
     Active Substance: METHYLPREDNISOLONE SODIUM SUCCINATE
     Indication: Endocrine ophthalmopathy
     Dosage: 1 DOSAGE FORM, CYCLICAL
     Route: 040
     Dates: start: 202109, end: 202112
  11. ACUPAN [Concomitant]
     Active Substance: NEFOPAM HYDROCHLORIDE
     Dosage: UNK
  12. ACETAMINOPHEN [Concomitant]
     Active Substance: ACETAMINOPHEN
     Dosage: UNK
     Dates: start: 202109, end: 202112
  13. CARBIMAZOLE [Concomitant]
     Active Substance: CARBIMAZOLE
     Dosage: UNK

REACTIONS (1)
  - Arthralgia [Not Recovered/Not Resolved]

NARRATIVE: CASE EVENT DATE: 20230101
